FAERS Safety Report 5120076-6 (Version None)
Quarter: 2006Q3

REPORT INFORMATION
  Report Type: 
  Country: None (occurrence: None)
  Receive Date: 20060928
  Receipt Date: 20060918
  Transmission Date: 20061208
  Serious: Yes (Other)
  Sender: FDA-Public Use
  Company Number: DE-2006-028022

PATIENT
  Sex: Female

DRUGS (1)
  1. YASMIN [Suspect]
     Dosage: ORAL
     Route: 048
     Dates: start: 20040101

REACTIONS (2)
  - FOCAL NODULAR HYPERPLASIA [None]
  - HEPATOMEGALY [None]
